FAERS Safety Report 5572830-4 (Version None)
Quarter: 2007Q4

REPORT INFORMATION
  Report Type: 
  Country: None (occurrence: None)
  Receive Date: 20071223
  Receipt Date: 20071217
  Transmission Date: 20080405
  Serious: Yes (Hospitalization)
  Sender: FDA-Public Use
  Company Number: PHEH2007US15791

PATIENT
  Sex: Male

DRUGS (5)
  1. MIRAPEX [Suspect]
     Indication: PARKINSON'S DISEASE
     Dosage: 1 MG, QID
     Route: 048
     Dates: start: 20061001, end: 20071119
  2. SINEMET [Suspect]
     Indication: PARKINSON'S DISEASE
     Route: 048
  3. ACIPHEX [Concomitant]
  4. SODIUM [Concomitant]
  5. LAMISIL [Suspect]
     Indication: TINEA PEDIS

REACTIONS (15)
  - ABNORMAL BEHAVIOUR [None]
  - ANXIETY [None]
  - CONFUSIONAL STATE [None]
  - CRYING [None]
  - DEPRESSION [None]
  - DRUG EFFECT DECREASED [None]
  - EMOTIONAL DISTRESS [None]
  - HALLUCINATION [None]
  - HYPERSEXUALITY [None]
  - MANIA [None]
  - NEGATIVE THOUGHTS [None]
  - PARANOIA [None]
  - PSYCHOTIC DISORDER [None]
  - STUBBORNNESS [None]
  - SUICIDAL IDEATION [None]
